FAERS Safety Report 9098539 (Version 1)
Quarter: 2013Q1

REPORT INFORMATION
  Report Type: Spontaneous
  Country: US (occurrence: US)
  Receive Date: 20130213
  Receipt Date: 20130213
  Transmission Date: 20140127
  Serious: Yes (Death, Life-Threatening)
  Sender: FDA-Public Use
  Company Number: US-ELI_LILLY_AND_COMPANY-US201302001798

PATIENT
  Age: 53 Year
  Sex: Male

DRUGS (6)
  1. OLANZAPINE [Suspect]
  2. PROZAC [Suspect]
  3. HEROIN [Concomitant]
  4. CODEINE [Concomitant]
  5. ALPRAZOLAM [Concomitant]
  6. DEXTROMETHORPHAN [Concomitant]

REACTIONS (4)
  - Death [Fatal]
  - Cardio-respiratory arrest [Unknown]
  - Cardiac arrest [None]
  - Respiratory arrest [None]
